FAERS Safety Report 9205172 (Version 1)
Quarter: 2013Q2

REPORT INFORMATION
  Report Type: Spontaneous
  Country: US (occurrence: None)
  Receive Date: 20130401
  Receipt Date: 20130401
  Transmission Date: 20140414
  Serious: Yes (Other)
  Sender: FDA-Public Use
  Company Number: None

PATIENT
  Age: 51 Year
  Sex: Male
  Weight: 97.52 kg

DRUGS (1)
  1. CIALIS [Suspect]
     Indication: ERECTILE DYSFUNCTION
     Dosage: 1 TABLET 1 PER WEEK
     Dates: start: 20120210, end: 20130329

REACTIONS (5)
  - Hypersensitivity [None]
  - Flushing [None]
  - Feeling hot [None]
  - Dyspnoea [None]
  - Food interaction [None]
